FAERS Safety Report 26028382 (Version 2)
Quarter: 2025Q4

REPORT INFORMATION
  Report Type: Report from Study
  Country: US (occurrence: None)
  Receive Date: 20251111
  Receipt Date: 20251125
  Transmission Date: 20260117
  Serious: Yes (Hospitalization)
  Sender: UCB
  Company Number: US-UCBSA-2025071000

PATIENT
  Age: 44 Year

DRUGS (2)
  1. BRIVARACETAM [Suspect]
     Active Substance: BRIVARACETAM
     Indication: Seizure
     Dosage: 100MG- TAKE 2 TABLETS (200 MG TOTAL) BY  MOUTH TWO (2) TIMES DAILY. MAX DAILY AMOUNT: 400 MG
  2. NAYZILAM [Suspect]
     Active Substance: MIDAZOLAM
     Indication: Seizure
     Dosage: 5 MILLIGRAM- AS NEEDED FOR SEIZURES

REACTIONS (7)
  - Seizure [Unknown]
  - Brain operation [Unknown]
  - Tooth fracture [Unknown]
  - Coma [Unknown]
  - Anxiety [Not Recovered/Not Resolved]
  - Therapy interrupted [Unknown]
  - Product availability issue [Unknown]
